FAERS Safety Report 7724294-X (Version None)
Quarter: 2011Q3

REPORT INFORMATION
  Report Type: 
  Country: None (occurrence: None)
  Receive Date: 20110901
  Receipt Date: 20110825
  Transmission Date: 20111222
  Serious: Yes (Hospitalization, Other)
  Sender: FDA-Public Use
  Company Number: KR-PFIZER INC-2011198293

PATIENT
  Age: 38 Year
  Sex: Male

DRUGS (2)
  1. AMLODIPINE BESYLATE [Suspect]
     Dosage: 130 MG, SINGLE
     Route: 048
  2. FLUOXETINE [Suspect]
     Dosage: 260 MG, SINGLE
     Route: 048

REACTIONS (4)
  - HYPERVENTILATION [None]
  - INTENTIONAL OVERDOSE [None]
  - TACHYCARDIA [None]
  - SUICIDE ATTEMPT [None]
